FAERS Safety Report 4738425-7 (Version None)
Quarter: 2005Q3

REPORT INFORMATION
  Report Type: 
  Country: None (occurrence: None)
  Receive Date: 20050803
  Receipt Date: 20050726
  Transmission Date: 20060218
  Serious: Yes (Hospitalization)
  Sender: FDA-Public Use
  Company Number: 2005107359

PATIENT
  Age: 84 Year
  Sex: Female
  Weight: 52 kg

DRUGS (6)
  1. XANAX [Suspect]
     Indication: ANXIETY
     Dosage: (3 IN 1 D) ORAL
     Route: 048
     Dates: end: 20050606
  2. ASPEGIC 1000 [Suspect]
     Dosage: EVERY DAY ORAL
     Route: 048
  3. NOCTRAN 10 [Suspect]
     Indication: SLEEP DISORDER
     Dosage: 10 MG EVERY DAY ORAL
     Route: 048
     Dates: start: 20050603
  4. VASAREL              (TRIMETAZIDINE HYDROCHLORIDE) [Suspect]
     Dosage: 60 MG (20 MG 3 IN 1 D) ORAL
     Route: 048
     Dates: end: 20050603
  5. TRANDATE [Suspect]
     Indication: ESSENTIAL HYPERTENSION
     Dosage: 400 MG (200 MG 2 IN 1 D) ORAL
     Route: 048
  6. CITALOPRAM HYDROBROMIDE [Suspect]
     Indication: DYSTHYMIC DISORDER
     Dosage: 40 MG (20 MG 2 IN 1 D) ORAL
     Route: 048
     Dates: end: 20050606

REACTIONS (4)
  - FALL [None]
  - RESPIRATORY DISORDER [None]
  - RHABDOMYOLYSIS [None]
  - VERTIGO [None]
